FAERS Safety Report 12397367 (Version 3)
Quarter: 2016Q4

REPORT INFORMATION
  Report Type: Spontaneous
  Country: US (occurrence: US)
  Receive Date: 20160524
  Receipt Date: 20161117
  Transmission Date: 20170207
  Serious: Yes (Death, Hospitalization)
  Sender: FDA-Public Use
  Company Number: US-PFIZER INC-2016260731

PATIENT
  Age: 70 Year
  Sex: Male

DRUGS (2)
  1. LYRICA [Suspect]
     Active Substance: PREGABALIN
  2. TIKOSYN [Suspect]
     Active Substance: DOFETILIDE
     Indication: VENTRICULAR EXTRASYSTOLES
     Dosage: 250 UG, 2X/DAY
     Dates: start: 20150610, end: 20160427

REACTIONS (1)
  - Cardiac arrest [Fatal]

NARRATIVE: CASE EVENT DATE: 20160502
